FAERS Safety Report 7541241-4 (Version None)
Quarter: 2011Q2

REPORT INFORMATION
  Report Type: 
  Country: None (occurrence: None)
  Receive Date: 20110610
  Receipt Date: 20110603
  Transmission Date: 20111010
  Serious: Yes (Hospitalization)
  Sender: FDA-Public Use
  Company Number: US-MERCK-1104USA02248

PATIENT
  Age: 77 Year
  Sex: Female
  Weight: 59 kg

DRUGS (12)
  1. LISINOPRIL [Concomitant]
     Route: 048
  2. TOPROL-XL [Concomitant]
     Route: 048
  3. ASPIRIN [Concomitant]
     Route: 048
  4. ZOCOR [Concomitant]
     Route: 048
  5. DIGOXIN [Concomitant]
     Route: 048
  6. TRAVATAN [Concomitant]
     Route: 047
  7. JANUMET [Suspect]
     Indication: TYPE 2 DIABETES MELLITUS
     Route: 048
  8. CYANOCOBALAMIN [Concomitant]
     Route: 030
  9. ALPRAZOLAM [Concomitant]
     Route: 065
  10. LEXAPRO [Concomitant]
     Route: 048
  11. CHOLECALCIFEROL [Concomitant]
     Route: 048
  12. ASACOL [Concomitant]
     Indication: COLITIS COLLAGENOUS
     Route: 048

REACTIONS (6)
  - PANCREATITIS [None]
  - ANAEMIA OF CHRONIC DISEASE [None]
  - ATRIAL FIBRILLATION [None]
  - COLITIS COLLAGENOUS [None]
  - METABOLIC ACIDOSIS [None]
  - CLOSTRIDIUM DIFFICILE COLITIS [None]
